FAERS Safety Report 9916388 (Version 1)
Quarter: 2014Q1

REPORT INFORMATION
  Report Type: Spontaneous
  Country: US (occurrence: US)
  Receive Date: 20140221
  Receipt Date: 20140221
  Transmission Date: 20141002
  Serious: No
  Sender: FDA-Public Use
  Company Number: US-009507513-1402USA004563

PATIENT
  Sex: Male

DRUGS (4)
  1. PEGINTRON [Suspect]
     Indication: CHRONIC HEPATITIS C
     Dosage: 150 MICROGRAM, QW
     Route: 058
     Dates: start: 20131225
  2. VICTRELIS [Suspect]
  3. RIBAVIRIN (WARRICK) [Suspect]
     Dosage: 200 MG, HS
  4. RIBAPAK [Suspect]
     Dosage: 600 MG, BID

REACTIONS (1)
  - Fatigue [Not Recovered/Not Resolved]
